FAERS Safety Report 16394482 (Version 1)
Quarter: 2019Q2

REPORT INFORMATION
  Report Type: Spontaneous
  Country: DE (occurrence: DE)
  Receive Date: 20190605
  Receipt Date: 20190605
  Transmission Date: 20190711
  Serious: Yes (Hospitalization, Other)
  Sender: FDA-Public Use
  Company Number: DE-PFIZER INC-2019237358

PATIENT
  Age: 57 Year
  Sex: Male
  Weight: 80 kg

DRUGS (5)
  1. OLMESARTAN [Concomitant]
     Active Substance: OLMESARTAN
     Indication: HYPERTENSION
     Dosage: UNK
     Dates: start: 2007
  2. ATORVASTATIN CALCIUM. [Suspect]
     Active Substance: ATORVASTATIN CALCIUM
     Indication: MYOCARDIAL INFARCTION
     Dosage: 40 MG, 1X/DAY
     Route: 048
     Dates: start: 2007, end: 201208
  3. ATORVASTATIN CALCIUM. [Suspect]
     Active Substance: ATORVASTATIN CALCIUM
     Indication: PROPHYLAXIS
  4. ASPIRIN. [Concomitant]
     Active Substance: ASPIRIN
     Dosage: UNK
  5. AMLODIPINE [Concomitant]
     Active Substance: AMLODIPINE BESYLATE
     Indication: HYPERTENSION
     Dosage: UNK
     Dates: start: 2007

REACTIONS (7)
  - Vocal cord paresis [Recovered/Resolved]
  - Dysaesthesia [Recovered/Resolved]
  - Neuropathy peripheral [Recovered/Resolved]
  - Winged scapula [Recovered/Resolved]
  - Peripheral sensory neuropathy [Recovered/Resolved]
  - Musculoskeletal pain [Recovered/Resolved]
  - Monoparesis [Recovered/Resolved]

NARRATIVE: CASE EVENT DATE: 201204
